FAERS Safety Report 4807005-7 (Version None)
Quarter: 2005Q4

REPORT INFORMATION
  Report Type: 
  Country: None (occurrence: None)
  Receive Date: 20051024
  Receipt Date: 20051013
  Transmission Date: 20060501
  Serious: Yes (Death)
  Sender: FDA-Public Use
  Company Number: US-JNJFOC-20050903890

PATIENT
  Sex: Male
  Weight: 76.2 kg

DRUGS (16)
  1. REMICADE [Suspect]
     Route: 042
  2. REMICADE [Suspect]
     Route: 042
  3. REMICADE [Suspect]
     Indication: RHEUMATOID ARTHRITIS
     Route: 042
  4. OXYCONTIN [Concomitant]
     Dosage: 20 MG IN AM/ 10 MG IN PM
  5. LENOXIN [Concomitant]
  6. LASIX [Concomitant]
  7. METHOTREXATE [Concomitant]
  8. FOLIC ACID [Concomitant]
  9. ASPIRIN [Concomitant]
  10. PREDNISONE TAB [Concomitant]
  11. FORTEO [Concomitant]
     Dosage: DAILY
     Route: 058
  12. ATIVAN [Concomitant]
     Dosage: 0.5 MG 1-2 TABS EVERY 4
  13. DURAGESIC-100 [Concomitant]
  14. MORPHINE [Concomitant]
     Dosage: 1CC PRN
  15. FLOMAX [Concomitant]
  16. SULFASALAZINE [Concomitant]

REACTIONS (3)
  - CARDIAC FAILURE CONGESTIVE [None]
  - MULTI-ORGAN FAILURE [None]
  - REFUSAL OF TREATMENT BY PATIENT [None]
